FAERS Safety Report 24184984 (Version 1)
Quarter: 2024Q3

REPORT INFORMATION
  Report Type: Spontaneous
  Country: GB (occurrence: GB)
  Receive Date: 20240807
  Receipt Date: 20240807
  Transmission Date: 20241017
  Serious: Yes (Other)
  Sender: JOHNSON AND JOHNSON
  Company Number: GB-JNJFOC-20240778874

PATIENT
  Age: 33 Year

DRUGS (2)
  1. IBUPROFEN [Suspect]
     Active Substance: IBUPROFEN
     Indication: Postoperative care
     Route: 065
     Dates: start: 20240713, end: 20240717
  2. COCODAMOL [Suspect]
     Active Substance: ACETAMINOPHEN\CODEINE PHOSPHATE
     Indication: Postoperative care
     Dosage: 30MG/500MG 2 TABLETS A DAY
     Route: 065
     Dates: start: 20240714, end: 20240717

REACTIONS (2)
  - Hiccups [Recovered/Resolved]
  - Dyspepsia [Recovered/Resolved]

NARRATIVE: CASE EVENT DATE: 20240714
